FAERS Safety Report 7212979-3 (Version None)
Quarter: 2011Q1

REPORT INFORMATION
  Report Type: 
  Country: None (occurrence: None)
  Receive Date: 20110106
  Receipt Date: 20110103
  Transmission Date: 20110831
  Serious: Yes (Other)
  Sender: FDA-Public Use
  Company Number: A0894984A

PATIENT
  Sex: Female
  Weight: 99.1 kg

DRUGS (10)
  1. ECTOSONE LOTION [Concomitant]
     Route: 061
     Dates: start: 20071123
  2. SYNTHROID [Concomitant]
     Indication: HYPOTHYROIDISM
     Dosage: 150MCG PER DAY
     Route: 048
     Dates: start: 20090421
  3. NAPROXEN [Concomitant]
     Indication: PAIN
     Dosage: 250MG THREE TIMES PER DAY
     Route: 048
     Dates: start: 20100914
  4. STIEVA-A CREAM [Concomitant]
     Route: 061
  5. ORTHO TRI-CYCLEN [Concomitant]
     Dosage: 1TAB PER DAY
     Route: 048
     Dates: start: 20070604
  6. LAMOTRIGINE [Suspect]
     Dosage: 200MG PER DAY
     Route: 048
     Dates: start: 20100112
  7. TRAZODONE HCL [Concomitant]
     Indication: DEPRESSION
     Dosage: 200MG AT NIGHT
     Route: 048
     Dates: start: 20080514
  8. DITROPAN XL [Concomitant]
     Dosage: 10MG PER DAY
     Route: 048
     Dates: start: 20090927
  9. MERIDIA [Concomitant]
     Indication: OBESITY
     Dosage: 20MG PER DAY
     Route: 048
     Dates: start: 20070816, end: 20101101
  10. CLINDOXYL [Concomitant]
     Route: 061

REACTIONS (7)
  - MACROCYTOSIS [None]
  - RED BLOOD CELL SEDIMENTATION RATE INCREASED [None]
  - RHEUMATOID FACTOR INCREASED [None]
  - MEAN CELL VOLUME INCREASED [None]
  - RED BLOOD CELL COUNT DECREASED [None]
  - MEAN CELL HAEMOGLOBIN INCREASED [None]
  - C-REACTIVE PROTEIN INCREASED [None]
